FAERS Safety Report 9949921 (Version 1)
Quarter: 2014Q1

REPORT INFORMATION
  Report Type: Spontaneous
  Country: US (occurrence: US)
  Receive Date: 20140304
  Receipt Date: 20140304
  Transmission Date: 20141002
  Serious: No
  Sender: FDA-Public Use
  Company Number: US-BAYER-2014-033006

PATIENT
  Age: 70 Year
  Sex: Male
  Weight: 99.77 kg

DRUGS (3)
  1. ALEVE CAPLET [Suspect]
     Indication: ARTHRITIS
     Dosage: 4 DF, UNK
     Route: 048
     Dates: start: 2012
  2. ALEVE CAPLET [Suspect]
     Indication: ARTHRITIS
     Dosage: 1 DF, EVERYDAY
     Route: 048
     Dates: start: 2013
  3. LIPITOR [Concomitant]

REACTIONS (3)
  - Diarrhoea [Recovered/Resolved]
  - Extra dose administered [None]
  - Incorrect drug administration duration [None]
